FAERS Safety Report 8150884-9 (Version None)
Quarter: 2012Q1

REPORT INFORMATION
  Report Type: 
  Country: None (occurrence: None)
  Receive Date: 20120220
  Receipt Date: 20120215
  Transmission Date: 20120608
  Serious: Yes (Hospitalization)
  Sender: FDA-Public Use
  Company Number: PHEH2011US03700

PATIENT
  Sex: Female
  Weight: 54 kg

DRUGS (16)
  1. EXJADE [Suspect]
     Indication: IRON OVERLOAD
     Dosage: UNK UKN, UNK
     Route: 048
  2. COLACE [Concomitant]
     Dosage: 50 MG, UNK
  3. METOPROLOL TARTRATE [Concomitant]
     Dosage: 25 MG, UNK
  4. EXJADE [Suspect]
     Dosage: 500 MG, DAILY
     Route: 048
  5. CALCIUM CARBONATE [Concomitant]
     Dosage: 600 MG, UNK
  6. WARFARIN SODIUM [Concomitant]
     Dosage: 3 MG, UNK
  7. EXJADE [Suspect]
     Dosage: 125 MG, DAILY
     Route: 048
     Dates: start: 20110629
  8. SIMVASTATIN [Concomitant]
     Dosage: 40 MG, UNK
  9. CIPROFLOXACIN [Concomitant]
  10. EXJADE [Suspect]
     Indication: IRON METABOLISM DISORDER
     Dosage: 500 MG, BID
     Route: 048
     Dates: start: 20110301
  11. EXJADE [Suspect]
     Indication: HAEMOGLOBINURIA
     Dosage: 500 MG, DAILY
     Route: 048
     Dates: start: 20110302
  12. ASPIRIN [Concomitant]
     Dosage: 81 MG, UNK
  13. MULTI-VITAMIN [Concomitant]
  14. VITAMIN B-12 [Concomitant]
  15. FOLIC ACID [Concomitant]
     Dosage: 1 MG, UNK
  16. LISINOPRIL [Concomitant]

REACTIONS (3)
  - CARDIAC FAILURE CONGESTIVE [None]
  - VIRAL INFECTION [None]
  - NERVOUS SYSTEM DISORDER [None]
